FAERS Safety Report 8391460-2 (Version None)
Quarter: 2012Q2

REPORT INFORMATION
  Report Type: 
  Country: None (occurrence: None)
  Receive Date: 20120529
  Receipt Date: 20120516
  Transmission Date: 20120825
  Serious: Yes (Hospitalization)
  Sender: FDA-Public Use
  Company Number: JP-ELI_LILLY_AND_COMPANY-JP201203002539

PATIENT
  Sex: Female

DRUGS (2)
  1. EVISTA [Suspect]
     Dosage: 120 MG, QD
     Route: 048
  2. EVISTA [Suspect]
     Dosage: UNK
     Route: 048

REACTIONS (2)
  - INTESTINAL OBSTRUCTION [None]
  - ACCIDENTAL OVERDOSE [None]
